FAERS Safety Report 9340464 (Version 1)
Quarter: 2013Q2

REPORT INFORMATION
  Report Type: Spontaneous
  Country: BR (occurrence: BR)
  Receive Date: 20130610
  Receipt Date: 20130610
  Transmission Date: 20140414
  Serious: Yes (Hospitalization, Other)
  Sender: FDA-Public Use
  Company Number: BR-ELI_LILLY_AND_COMPANY-BR201306000569

PATIENT
  Age: 88 Year
  Sex: Female
  Weight: 70 kg

DRUGS (8)
  1. FORTEO [Suspect]
     Indication: OSTEOPOROSIS
     Dosage: 20 UG, QD
     Route: 058
     Dates: start: 20120428
  2. FORTEO [Suspect]
     Dosage: 20 UG, QD
     Route: 058
  3. FORTEO [Suspect]
     Dosage: 20 IU, QD
     Route: 058
  4. FORTEO [Suspect]
     Dosage: 20 UG, QD
     Route: 058
  5. INDAPAMID [Concomitant]
     Indication: BLOOD PRESSURE ABNORMAL
     Dosage: 1.5 MG, QD
     Route: 065
  6. PANTOPRAZOL [Concomitant]
     Indication: GASTROOESOPHAGEAL REFLUX DISEASE
     Dosage: 40 MG, QD
     Route: 065
  7. SERTRALINA [Concomitant]
     Indication: DEPRESSION
     Dosage: UNK, UNKNOWN
     Route: 065
     Dates: start: 20130516
  8. ISKEMIL [Concomitant]
     Dosage: UNK, UNKNOWN
     Route: 065

REACTIONS (8)
  - Musculoskeletal stiffness [Recovering/Resolving]
  - Speech disorder [Not Recovered/Not Resolved]
  - Blood pressure abnormal [Recovered/Resolved]
  - Tongue oedema [Not Recovered/Not Resolved]
  - Pneumonia [Unknown]
  - Nausea [Unknown]
  - Somnolence [Recovered/Resolved]
  - Asthenia [Unknown]
